FAERS Safety Report 11255724 (Version 2)
Quarter: 2015Q3

REPORT INFORMATION
  Report Type: Spontaneous
  Country: JP (occurrence: JP)
  Receive Date: 20150709
  Receipt Date: 20150811
  Transmission Date: 20151125
  Serious: Yes (Hospitalization, Other)
  Sender: FDA-Public Use
  Company Number: JP-TEVA-575459ISR

PATIENT
  Age: 66 Year
  Sex: Male

DRUGS (8)
  1. FOLINIC ACID [Concomitant]
     Active Substance: LEUCOVORIN
     Indication: COLON CANCER
     Dosage: 200 MG/M2 DAILY;
     Route: 042
     Dates: start: 201006
  2. PANITUMUMAB [Suspect]
     Active Substance: PANITUMUMAB
     Route: 065
  3. FLUOROURACIL. [Concomitant]
     Active Substance: FLUOROURACIL
     Indication: COLON CANCER
     Dosage: 400 MG/M2
     Route: 040
     Dates: start: 201006
  4. IRINOTECAN [Suspect]
     Active Substance: IRINOTECAN
     Route: 065
  5. OXALIPLATIN. [Suspect]
     Active Substance: OXALIPLATIN
     Indication: COLON CANCER
     Dosage: 85 MG/M2 DAILY;
     Route: 042
     Dates: start: 201006
  6. FLUOROURACIL. [Concomitant]
     Active Substance: FLUOROURACIL
     Indication: COLON CANCER
     Dosage: 2400 MG/M2
     Route: 042
  7. BEVACIZUMAB [Concomitant]
     Active Substance: BEVACIZUMAB
     Indication: COLON CANCER
     Dosage: 5 MG/KG DAILY;
     Route: 042
     Dates: start: 201006
  8. LACTULOSE. [Concomitant]
     Active Substance: LACTULOSE
     Route: 065

REACTIONS (8)
  - Oesophageal varices haemorrhage [Recovering/Resolving]
  - Anaemia [Unknown]
  - Venoocclusive liver disease [Recovering/Resolving]
  - Haematemesis [Unknown]
  - Metastases to liver [Unknown]
  - Nerve injury [Unknown]
  - Altered state of consciousness [Unknown]
  - Hyperammonaemia [Unknown]
